FAERS Safety Report 21728408 (Version 1)
Quarter: 2022Q4

REPORT INFORMATION
  Report Type: Spontaneous
  Country: US (occurrence: None)
  Receive Date: 20221214
  Receipt Date: 20221214
  Transmission Date: 20230113
  Serious: No
  Sender: FDA-Public Use
  Company Number: 2022A388532

PATIENT
  Age: 27645 Day
  Sex: Female

DRUGS (1)
  1. BUDESONIDE\FORMOTEROL\GLYCOPYRRONIUM [Suspect]
     Active Substance: BUDESONIDE\FORMOTEROL\GLYCOPYRRONIUM
     Indication: Chronic obstructive pulmonary disease
     Dosage: , 160 MCG, VIA INHALATION, 2 PUFFS 2 TIMES A DAY
     Route: 055

REACTIONS (4)
  - Influenza [Not Recovered/Not Resolved]
  - Memory impairment [Not Recovered/Not Resolved]
  - Poor quality sleep [Unknown]
  - Cough [Not Recovered/Not Resolved]

NARRATIVE: CASE EVENT DATE: 20221121
